FAERS Safety Report 5738390-X (Version None)
Quarter: 2008Q2

REPORT INFORMATION
  Report Type: 
  Country: None (occurrence: None)
  Receive Date: 20080513
  Receipt Date: 20080501
  Transmission Date: 20081010
  Serious: Yes (Hospitalization, Other)
  Sender: FDA-Public Use
  Company Number: 2008-01037

PATIENT
  Age: 58 Year
  Sex: Male

DRUGS (10)
  1. VELCADE [Suspect]
     Indication: ACUTE MYELOID LEUKAEMIA
     Dosage: 2.7 MG,   INTRAVENOUS
     Route: 042
     Dates: start: 20050204, end: 20050214
  2. IDARUBICIN(IDARUBICIN) CAPSULE, 5.0MG [Suspect]
     Indication: ACUTE MYELOID LEUKAEMIA
     Dosage: 26 MG, INTRAVENOUS
     Route: 042
     Dates: start: 20050204, end: 20050206
  3. CYTARABINE [Suspect]
     Indication: ACUTE MYELOID LEUKAEMIA
     Dosage: 216 MG, INTRAVENOUS
     Route: 042
  4. MAGNESIUM SULFATE [Concomitant]
  5. POTASSIUM CHLORIDE [Concomitant]
  6. MEPRON [Concomitant]
  7. NYSTATIN [Concomitant]
  8. NEXIUM [Concomitant]
  9. ACYCLOVIR [Concomitant]
  10. LEVOFLOXACIN [Concomitant]

REACTIONS (1)
  - ACUTE GRAFT VERSUS HOST DISEASE IN INTESTINE [None]
